FAERS Safety Report 7734574-X (Version None)
Quarter: 2011Q3

REPORT INFORMATION
  Report Type: 
  Country: None (occurrence: None)
  Receive Date: 20110907
  Receipt Date: 20110825
  Transmission Date: 20111222
  Serious: Yes (Hospitalization)
  Sender: FDA-Public Use
  Company Number: FR-SPECTRUM PHARMACEUTICALS, INC.-11-Z-FR-00243

PATIENT

DRUGS (2)
  1. RITUXIMAB [Suspect]
     Indication: B-CELL LYMPHOMA
     Dosage: 3130 MG, UNK
     Route: 042
     Dates: start: 20100611, end: 20100729
  2. ZEVALIN [Suspect]
     Indication: B-CELL LYMPHOMA
     Dosage: 1261 MBQ, SINGLE
     Route: 042
     Dates: start: 20100729, end: 20100729

REACTIONS (1)
  - LUNG DISORDER [None]
